FAERS Safety Report 6779518-2 (Version None)
Quarter: 2010Q2

REPORT INFORMATION
  Report Type: 
  Country: None (occurrence: None)
  Receive Date: 20100618
  Receipt Date: 20100614
  Transmission Date: 20101027
  Serious: Yes (Death, Hospitalization)
  Sender: FDA-Public Use
  Company Number: ES-ASTRAZENECA-2010SE04661

PATIENT
  Age: 81 Year
  Sex: Female

DRUGS (8)
  1. CRESTOR [Suspect]
     Indication: HYPERCHOLESTEROLAEMIA
     Route: 048
     Dates: start: 20091218, end: 20100116
  2. NEXIUM [Concomitant]
     Indication: GASTROOESOPHAGEAL REFLUX DISEASE
     Route: 048
     Dates: end: 20100116
  3. ENALAPRIL MALEATE [Concomitant]
     Indication: HYPERTENSION
  4. SUTRIL [Concomitant]
     Dates: start: 20091218
  5. METFORMIN HCL [Concomitant]
     Dosage: 850: 1/2 BREAKFAST; 1/2 DINNER
  6. DISGREN [Concomitant]
     Dosage: 600; 1 DAILY
     Dates: start: 20091218
  7. PRIMPERAN TAB [Concomitant]
     Dosage: 1 SPOONFUL
  8. VENLAFAXINE [Concomitant]
     Indication: DEPRESSION
     Dates: start: 20091215

REACTIONS (1)
  - ACUTE HEPATIC FAILURE [None]
